FAERS Safety Report 14728151 (Version 1)
Quarter: 2018Q2

REPORT INFORMATION
  Report Type: Report from Study
  Country: US (occurrence: US)
  Receive Date: 20180406
  Receipt Date: 20180406
  Transmission Date: 20180711
  Serious: Yes (Hospitalization)
  Sender: FDA-Public Use
  Company Number: US-BAYER-2018-014151

PATIENT
  Age: 86 Year
  Sex: Female

DRUGS (5)
  1. AMLODIPINE BESYLATE. [Concomitant]
     Active Substance: AMLODIPINE BESYLATE
  2. STIVARGA [Suspect]
     Active Substance: REGORAFENIB
     Indication: COLON CANCER
     Dosage: 120 MG FOR 21 DAYS
     Route: 048
     Dates: start: 20180117, end: 201801
  3. CENTRUM SILVER [Concomitant]
     Active Substance: MINERALS\VITAMINS
  4. STIVARGA [Suspect]
     Active Substance: REGORAFENIB
     Indication: COLON CANCER
     Dosage: UNK
     Dates: start: 20180209, end: 20180219
  5. HYDROCHLOROTHIAZIDE. [Concomitant]
     Active Substance: HYDROCHLOROTHIAZIDE

REACTIONS (6)
  - Off label use [None]
  - Vaginal haemorrhage [Recovered/Resolved]
  - Urinary tract infection [None]
  - Pyrexia [None]
  - Asthenia [Recovered/Resolved]
  - Dyspnoea [None]

NARRATIVE: CASE EVENT DATE: 201802
